FAERS Safety Report 6791235-1 (Version None)
Quarter: 2010Q2

REPORT INFORMATION
  Report Type: 
  Country: None (occurrence: None)
  Receive Date: 20100624
  Receipt Date: 20100614
  Transmission Date: 20101027
  Serious: Yes (Other)
  Sender: FDA-Public Use
  Company Number: US-PFIZER INC-2010070081

PATIENT
  Sex: Female

DRUGS (2)
  1. CHANTIX [Suspect]
     Indication: SMOKING CESSATION THERAPY
     Dosage: 0.5 MG, 1X/DAY
     Route: 048
     Dates: start: 20100101
  2. ZOLOFT [Concomitant]
     Indication: STRESS
     Dosage: UNK

REACTIONS (9)
  - CHEST PAIN [None]
  - CONFUSIONAL STATE [None]
  - DEPRESSION [None]
  - DISORIENTATION [None]
  - DYSPNOEA [None]
  - FACIAL PAIN [None]
  - HYPOAESTHESIA ORAL [None]
  - OEDEMA MOUTH [None]
  - SWELLING FACE [None]
